FAERS Safety Report 16212877 (Version 1)
Quarter: 2019Q2

REPORT INFORMATION
  Report Type: Spontaneous
  Country: JP (occurrence: JP)
  Receive Date: 20190418
  Receipt Date: 20190418
  Transmission Date: 20190711
  Serious: Yes (Other)
  Sender: FDA-Public Use
  Company Number: JP-PFIZER INC-2019163102

PATIENT

DRUGS (1)
  1. ANCARON [Suspect]
     Active Substance: AMIODARONE HYDROCHLORIDE
     Dosage: UNK (LOW DOSE)
     Route: 048

REACTIONS (2)
  - Chest X-ray abnormal [Unknown]
  - Interstitial lung disease [Unknown]
